FAERS Safety Report 20530877 (Version 1)
Quarter: 2022Q1

REPORT INFORMATION
  Report Type: Spontaneous
  Country: US (occurrence: US)
  Receive Date: 20220301
  Receipt Date: 20220301
  Transmission Date: 20220423
  Serious: No
  Sender: FDA-Public Use
  Company Number: US-IGSA-BIG0013134

PATIENT
  Age: 65 Year
  Sex: Female
  Weight: 57 kg

DRUGS (17)
  1. PROLASTIN-C LIQUID [Suspect]
     Active Substance: .ALPHA.1-PROTEINASE INHIBITOR HUMAN
     Indication: Alpha-1 antitrypsin deficiency
     Dosage: 60 MILLIGRAM/KILOGRAM, Q.WK.
     Route: 042
     Dates: start: 20210123
  2. PROLASTIN-C LIQUID [Suspect]
     Active Substance: .ALPHA.1-PROTEINASE INHIBITOR HUMAN
     Dosage: 60 MILLIGRAM/KILOGRAM, Q.WK.
     Route: 042
     Dates: start: 20191011
  3. PREDNISONE [Concomitant]
     Active Substance: PREDNISONE
  4. COLCHICINE [Concomitant]
     Active Substance: COLCHICINE
  5. LEVOTHYROXINE [Concomitant]
     Active Substance: LEVOTHYROXINE
  6. LIOTHYRONINE [Concomitant]
     Active Substance: LIOTHYRONINE
  7. ESTRADIOL [Concomitant]
     Active Substance: ESTRADIOL
  8. ARMODAFINIL [Concomitant]
     Active Substance: ARMODAFINIL
  9. BREO ELLIPTA [Concomitant]
     Active Substance: FLUTICASONE FUROATE\VILANTEROL TRIFENATATE
  10. HYDROXYCHLOROQUINE SULFATE [Concomitant]
     Active Substance: HYDROXYCHLOROQUINE SULFATE
  11. COENZYME Q10 [Concomitant]
     Active Substance: DIETARY SUPPLEMENT\UBIDECARENONE
  12. ADDERALL [Concomitant]
     Active Substance: AMPHETAMINE ASPARTATE\AMPHETAMINE SULFATE\DEXTROAMPHETAMINE SACCHARATE\DEXTROAMPHETAMINE SULFATE
  13. TELMISARTAN [Concomitant]
     Active Substance: TELMISARTAN
  14. PROGESTERONE [Concomitant]
     Active Substance: PROGESTERONE
  15. CLONIDINE HYDROCHLORIDE [Concomitant]
     Active Substance: CLONIDINE HYDROCHLORIDE
  16. CHOLESTYRAMINE LIGHT [Concomitant]
     Active Substance: CHOLESTYRAMINE
  17. CRESTOR [Concomitant]
     Active Substance: ROSUVASTATIN CALCIUM

REACTIONS (11)
  - Infusion site warmth [Recovering/Resolving]
  - Infusion site pain [Recovering/Resolving]
  - Intentional dose omission [Recovered/Resolved]
  - Condition aggravated [Not Recovered/Not Resolved]
  - Diarrhoea [Not Recovered/Not Resolved]
  - Fatigue [Not Recovered/Not Resolved]
  - Anxiety [Not Recovered/Not Resolved]
  - Insomnia [Not Recovered/Not Resolved]
  - Chills [Not Recovered/Not Resolved]
  - Cold sweat [Not Recovered/Not Resolved]
  - Platelet count decreased [Not Recovered/Not Resolved]

NARRATIVE: CASE EVENT DATE: 20210123
